FAERS Safety Report 8423788-1 (Version None)
Quarter: 2012Q2

REPORT INFORMATION
  Report Type: 
  Country: None (occurrence: None)
  Receive Date: 20120608
  Receipt Date: 20120525
  Transmission Date: 20120825
  Serious: No
  Sender: FDA-Public Use
  Company Number: US-ASTRAZENECA-2012SE21584

PATIENT
  Age: 37 Year
  Sex: Female
  Weight: 97.5 kg

DRUGS (7)
  1. NEXIUM [Suspect]
     Indication: GASTROOESOPHAGEAL REFLUX DISEASE
     Route: 048
     Dates: start: 20101101, end: 20120328
  2. NEXIUM [Suspect]
     Route: 048
     Dates: start: 20120329, end: 20120329
  3. VITAMIN B12 COMPLEX [Concomitant]
     Indication: VITAMIN SUPPLEMENTATION
  4. NEXIUM [Suspect]
     Indication: HIATUS HERNIA
     Route: 048
     Dates: start: 20101101, end: 20120328
  5. MUCINEX [Concomitant]
     Indication: RHINORRHOEA
  6. NEXIUM [Suspect]
     Route: 048
     Dates: start: 20120329, end: 20120329
  7. IBUPROFEN [Concomitant]
     Indication: HEADACHE

REACTIONS (17)
  - NAUSEA [None]
  - INTENTIONAL DRUG MISUSE [None]
  - COUGH [None]
  - ANAEMIA VITAMIN B12 DEFICIENCY [None]
  - BRONCHOSPASM [None]
  - ABDOMINAL PAIN [None]
  - ABDOMINAL PAIN UPPER [None]
  - HEART RATE INCREASED [None]
  - GASTROOESOPHAGEAL REFLUX DISEASE [None]
  - HAEMATEMESIS [None]
  - VISION BLURRED [None]
  - ALOPECIA [None]
  - ARTHRALGIA [None]
  - MUSCULAR WEAKNESS [None]
  - SINUS CONGESTION [None]
  - DIZZINESS [None]
  - PARAESTHESIA [None]
